FAERS Safety Report 25050243 (Version 1)
Quarter: 2025Q1

REPORT INFORMATION
  Report Type: Spontaneous
  Country: US (occurrence: None)
  Receive Date: 20250306
  Receipt Date: 20250306
  Transmission Date: 20250408
  Serious: Yes (Disabling)
  Sender: FDA-CTU
  Company Number: None

PATIENT
  Age: 65 Year
  Sex: Female
  Weight: 54 kg

DRUGS (1)
  1. REPATHA [Suspect]
     Active Substance: EVOLOCUMAB
     Dates: start: 20250214, end: 20250301

REACTIONS (7)
  - Tremor [None]
  - Chills [None]
  - Brain fog [None]
  - Fatigue [None]
  - Anxiety [None]
  - Heart rate increased [None]
  - Dyspnoea exertional [None]

NARRATIVE: CASE EVENT DATE: 20250301
